FAERS Safety Report 4299979-0 (Version None)
Quarter: 2004Q1

REPORT INFORMATION
  Report Type: 
  Country: None (occurrence: None)
  Receive Date: 20040218
  Receipt Date: 20040206
  Transmission Date: 20041129
  Serious: Yes (Hospitalization)
  Sender: FDA-Public Use
  Company Number: 04P-056-0249951-00

PATIENT
  Age: 2 Day
  Sex: Male

DRUGS (1)
  1. DEPAKINE CHRONO (DEPAKENE TABLETS) (VALPROATE SODIUM) (VALPROATE SODIU [Suspect]
     Dosage: 500 MG, 1 IN 1 D, TRANSPLANCENTAL
     Route: 064
     Dates: start: 19960201, end: 19961030

REACTIONS (2)
  - MATERNAL DRUGS AFFECTING FOETUS [None]
  - TREMOR NEONATAL [None]
